FAERS Safety Report 24354431 (Version 1)
Quarter: 2024Q3

REPORT INFORMATION
  Report Type: Spontaneous
  Country: EU (occurrence: EU)
  Receive Date: 20240923
  Receipt Date: 20240923
  Transmission Date: 20241017
  Serious: Yes (Death)
  Sender: ETHYPHARM
  Company Number: None

PATIENT

DRUGS (5)
  1. BUPRENORPHINE HYDROCHLORIDE [Suspect]
     Active Substance: BUPRENORPHINE HYDROCHLORIDE
     Dates: end: 20240525
  2. CANNABIS SATIVA SUBSP. INDICA TOP [Suspect]
     Active Substance: CANNABIS SATIVA SUBSP. INDICA TOP
     Dosage: PLUSIEURS JOINTS PAR JOUR
     Route: 055
     Dates: end: 20240525
  3. ALCOHOL [Suspect]
     Active Substance: ALCOHOL
     Route: 048
     Dates: end: 20240525
  4. COCAINE [Suspect]
     Active Substance: COCAINE
     Route: 055
     Dates: start: 20240525
  5. UNSPECIFIED INGREDIENT [Suspect]
     Active Substance: UNSPECIFIED INGREDIENT
     Dates: end: 20240525

REACTIONS (7)
  - Drug abuse [Fatal]
  - Psychiatric decompensation [Fatal]
  - Hallucination [Fatal]
  - Anosognosia [Fatal]
  - Aggression [Fatal]
  - Drug withdrawal syndrome [Fatal]
  - Cardiac arrest [Fatal]

NARRATIVE: CASE EVENT DATE: 20240524
